FAERS Safety Report 8179733-X (Version None)
Quarter: 2012Q1

REPORT INFORMATION
  Report Type: 
  Country: None (occurrence: None)
  Receive Date: 20120302
  Receipt Date: 20120222
  Transmission Date: 20120608
  Serious: Yes (Hospitalization)
  Sender: FDA-Public Use
  Company Number: US-SANOFI-AVENTIS-2012SA013759

PATIENT
  Age: 78 Year
  Sex: Female

DRUGS (2)
  1. GLYBURIDE [Concomitant]
     Indication: TYPE 2 DIABETES MELLITUS
  2. HYDROXYCHLOROQUINE SULFATE [Suspect]
     Indication: RHEUMATOID ARTHRITIS
     Route: 065

REACTIONS (5)
  - DIZZINESS [None]
  - NAUSEA [None]
  - COLD SWEAT [None]
  - HYPOGLYCAEMIA [None]
  - PALPITATIONS [None]
